FAERS Safety Report 22845695 (Version 5)
Quarter: 2023Q4

REPORT INFORMATION
  Report Type: Spontaneous
  Country: US (occurrence: US)
  Receive Date: 20230821
  Receipt Date: 20231018
  Transmission Date: 20240110
  Serious: No
  Sender: FDA-Public Use
  Company Number: US-BRISTOL-MYERS SQUIBB COMPANY-2023-116946

PATIENT
  Age: 79 Year
  Sex: Male

DRUGS (3)
  1. POMALYST [Suspect]
     Active Substance: POMALIDOMIDE
     Indication: Plasma cell myeloma
     Route: 048
     Dates: start: 202305
  2. POMALYST [Suspect]
     Active Substance: POMALIDOMIDE
     Dosage: POMALYST FREQUENCY: ONCE DAILY FOR 21 DAYS ON AND 7 DAYS OFF.
     Route: 048
     Dates: start: 202305
  3. NINLARO [Suspect]
     Active Substance: IXAZOMIB CITRATE
     Indication: Plasma cell myeloma
     Dates: start: 2023

REACTIONS (12)
  - Erythema [Unknown]
  - Acne [Unknown]
  - Paraesthesia [Unknown]
  - Diarrhoea [Unknown]
  - Peripheral swelling [Unknown]
  - Memory impairment [Unknown]
  - Dizziness postural [Unknown]
  - Swelling [Unknown]
  - Pain in extremity [Unknown]
  - Rash papular [Unknown]
  - Off label use [Unknown]
  - Dizziness [Unknown]
